FAERS Safety Report 16784205 (Version 1)
Quarter: 2019Q3

REPORT INFORMATION
  Report Type: Spontaneous
  Country: US (occurrence: US)
  Receive Date: 20190909
  Receipt Date: 20190909
  Transmission Date: 20191005
  Serious: No
  Sender: FDA-Public Use
  Company Number: US-BRISTOL-MYERS SQUIBB COMPANY-BMS-2019-087364

PATIENT
  Age: 53 Year
  Sex: Male
  Weight: 126.98 kg

DRUGS (1)
  1. ELIQUIS [Suspect]
     Active Substance: APIXABAN
     Indication: PULMONARY EMBOLISM
     Dosage: 5 MILLIGRAM, BID
     Route: 048
     Dates: start: 201904

REACTIONS (6)
  - Gait disturbance [Unknown]
  - Peripheral swelling [Unknown]
  - Anxiety [Unknown]
  - Arthralgia [Unknown]
  - Joint swelling [Unknown]
  - Myalgia [Unknown]

NARRATIVE: CASE EVENT DATE: 201904
